FAERS Safety Report 4860392-6 (Version None)
Quarter: 2005Q4

REPORT INFORMATION
  Report Type: 
  Country: None (occurrence: None)
  Receive Date: 20051215
  Receipt Date: 20051207
  Transmission Date: 20060501
  Serious: Yes (Life-Threatening, Hospitalization)
  Sender: FDA-Public Use
  Company Number: MK200512-0120-1

PATIENT
  Age: 95 Year
  Sex: Male

DRUGS (9)
  1. NEUTROSPEC [Suspect]
     Indication: OSTEOMYELITIS
     Dosage: 20.6 MCI, ONE TIME, IV
     Route: 042
     Dates: start: 20051118, end: 20051118
  2. FLOMAX [Concomitant]
  3. LASIX [Concomitant]
  4. ANCEF [Concomitant]
  5. BETAPACE [Concomitant]
  6. DETROL LA [Concomitant]
  7. ZOCOR [Concomitant]
  8. INSULIN [Concomitant]
  9. LEXAPRO [Concomitant]

REACTIONS (3)
  - CARDIO-RESPIRATORY ARREST [None]
  - PROCEDURAL COMPLICATION [None]
  - SYNCOPE [None]
